FAERS Safety Report 8478320-3 (Version None)
Quarter: 2012Q2

REPORT INFORMATION
  Report Type: 
  Country: None (occurrence: None)
  Receive Date: 20120629
  Receipt Date: 20120620
  Transmission Date: 20120825
  Serious: Yes (Hospitalization)
  Sender: FDA-Public Use
  Company Number: US-INCYTE CORPORATION-2012IN000820

PATIENT
  Sex: Male
  Weight: 73 kg

DRUGS (10)
  1. METOPROLOL SUCCINATE [Concomitant]
  2. FLOMAX [Concomitant]
  3. SODIUM BICARBONATE [Concomitant]
  4. METHYLDOPA/ CARBIDOPA [Concomitant]
  5. FOLIC ACID [Concomitant]
  6. ZOCOR [Concomitant]
  7. ALLOPURINOL [Concomitant]
  8. JAKAFI [Suspect]
     Indication: MYELOFIBROSIS
     Dosage: 10 MG, BID
     Route: 048
     Dates: start: 20120109, end: 20120122
  9. AMLODIPINE [Concomitant]
  10. SYNTHROID [Concomitant]

REACTIONS (1)
  - RENAL FAILURE ACUTE [None]
